FAERS Safety Report 5475603-6 (Version None)
Quarter: 2007Q4

REPORT INFORMATION
  Report Type: 
  Country: None (occurrence: None)
  Receive Date: 20071003
  Receipt Date: 20070207
  Transmission Date: 20080405
  Serious: No
  Sender: FDA-Public Use
  Company Number: US-KINGPHARMUSA00001-K200700148

PATIENT

DRUGS (2)
  1. SONATA [Suspect]
     Indication: INSOMNIA
     Dosage: 20 MG, PRN HS
     Route: 048
     Dates: start: 20060101
  2. OXYCONTIN [Concomitant]
     Indication: ARTHRALGIA
     Dosage: 80 MG, BID
     Route: 048

REACTIONS (1)
  - DRUG INEFFECTIVE [None]
